FAERS Safety Report 6593648-X (Version None)
Quarter: 2010Q1

REPORT INFORMATION
  Report Type: 
  Country: None (occurrence: None)
  Receive Date: 20100222
  Receipt Date: 20091028
  Transmission Date: 20100710
  Serious: Yes (Other)
  Sender: FDA-Public Use
  Company Number: US-BRISTOL-MYERS SQUIBB COMPANY-14803217

PATIENT
  Age: 56 Year
  Sex: Female

DRUGS (14)
  1. ORENCIA [Suspect]
     Indication: RHEUMATOID ARTHRITIS
     Dosage: 3 DF=3 VIALS
     Route: 042
     Dates: start: 20060608, end: 20090903
  2. CYTOXAN [Suspect]
  3. METHOTREXATE [Suspect]
  4. IMURAN [Suspect]
  5. LISINOPRIL [Concomitant]
  6. HYDROCHLOROTHIAZIDE [Concomitant]
  7. PREVACID [Concomitant]
  8. NORCO [Concomitant]
  9. SOMA [Concomitant]
  10. OXYCONTIN [Concomitant]
  11. ACTONEL [Concomitant]
  12. JANUVIA [Concomitant]
  13. ACTOS [Concomitant]
  14. CETIRIZINE HCL [Concomitant]

REACTIONS (1)
  - BASAL CELL CARCINOMA [None]
